FAERS Safety Report 17358906 (Version 4)
Quarter: 2023Q4

REPORT INFORMATION
  Report Type: Report from Study
  Country: JP (occurrence: JP)
  Receive Date: 20200202
  Receipt Date: 20231025
  Transmission Date: 20240110
  Serious: Yes (Hospitalization, Other)
  Sender: FDA-Public Use
  Company Number: None

PATIENT

DRUGS (47)
  1. LAMISIL [Suspect]
     Active Substance: TERBINAFINE HYDROCHLORIDE
     Indication: Systemic mycosis
     Dosage: 125 MG, QD
     Route: 065
     Dates: start: 20180927
  2. LAMISIL [Suspect]
     Active Substance: TERBINAFINE HYDROCHLORIDE
     Indication: Chromoblastomycosis
     Dosage: 250 MG, QD
     Route: 065
     Dates: start: 20181002, end: 20181005
  3. PREDNISOLONE [Suspect]
     Active Substance: PREDNISOLONE
     Indication: Systemic lupus erythematosus
     Dosage: 30 MG, 1D
     Route: 048
     Dates: start: 20180119, end: 20180122
  4. PREDNISOLONE [Suspect]
     Active Substance: PREDNISOLONE
     Dosage: 25 MG, 1D
     Route: 048
     Dates: start: 20180123, end: 20180201
  5. PREDNISOLONE [Suspect]
     Active Substance: PREDNISOLONE
     Dosage: 30 MG, 1D
     Route: 048
     Dates: start: 20180202, end: 20180222
  6. PREDNISOLONE [Suspect]
     Active Substance: PREDNISOLONE
     Dosage: 28 MG, 1D
     Route: 048
     Dates: start: 20180223, end: 20180315
  7. PREDNISOLONE [Suspect]
     Active Substance: PREDNISOLONE
     Dosage: 26 MG, 1D
     Route: 048
     Dates: start: 20180316, end: 20180329
  8. PREDNISOLONE [Suspect]
     Active Substance: PREDNISOLONE
     Dosage: 24 MG, 1D
     Route: 048
     Dates: start: 20180330, end: 20180524
  9. PREDNISOLONE [Suspect]
     Active Substance: PREDNISOLONE
     Dosage: 23 MG, 1D
     Route: 048
     Dates: start: 20180525, end: 20180621
  10. PREDNISOLONE [Suspect]
     Active Substance: PREDNISOLONE
     Dosage: 22.5 MG, 1D
     Route: 048
     Dates: start: 20180622, end: 20180816
  11. PREDNISOLONE [Suspect]
     Active Substance: PREDNISOLONE
     Dosage: 23 MG, 1D
     Route: 048
     Dates: start: 20180817, end: 20180930
  12. PREDNISOLONE [Suspect]
     Active Substance: PREDNISOLONE
     Dosage: 22 MG, 1D
     Route: 048
     Dates: start: 20181001, end: 20181004
  13. PREDNISOLONE [Suspect]
     Active Substance: PREDNISOLONE
     Dosage: 20 MG, 1D
     Route: 048
     Dates: start: 20181008, end: 20181010
  14. PREDNISOLONE [Suspect]
     Active Substance: PREDNISOLONE
     Dosage: 21 MG, 1D
     Route: 048
     Dates: start: 20181005, end: 20181007
  15. PREDNISOLONE [Suspect]
     Active Substance: PREDNISOLONE
     Dosage: 19 MG, 1D
     Route: 048
     Dates: start: 20181011, end: 20181013
  16. PREDNISOLONE [Suspect]
     Active Substance: PREDNISOLONE
     Dosage: 18 MG, 1D
     Route: 048
     Dates: start: 20181014, end: 20181019
  17. PREDNISOLONE [Suspect]
     Active Substance: PREDNISOLONE
     Dosage: 17 MG, 1D
     Route: 048
     Dates: start: 20181020, end: 20181026
  18. PREDNISOLONE [Suspect]
     Active Substance: PREDNISOLONE
     Dosage: 16 MG, 1D
     Route: 048
     Dates: start: 20181027, end: 20181102
  19. PREDNISOLONE [Suspect]
     Active Substance: PREDNISOLONE
     Dosage: 15 MG, 1D
     Route: 048
     Dates: start: 20181103, end: 20181113
  20. PREDNISOLONE [Suspect]
     Active Substance: PREDNISOLONE
     Dosage: 14 MG, 1D
     Route: 048
     Dates: start: 20181114
  21. PREDNISOLONE [Suspect]
     Active Substance: PREDNISOLONE
     Dosage: 15 MG, QD
     Route: 048
     Dates: start: 20151228
  22. ITRACONAZOLE [Suspect]
     Active Substance: ITRACONAZOLE
     Indication: Systemic mycosis
     Dosage: 200 MG, 1D
     Route: 065
     Dates: start: 20180914, end: 20180927
  23. ITRACONAZOLE [Suspect]
     Active Substance: ITRACONAZOLE
     Indication: Chromoblastomycosis
     Dosage: 100 MG, 1D
     Route: 065
     Dates: start: 20180731, end: 20180929
  24. MICAFUNGIN SODIUM [Suspect]
     Active Substance: MICAFUNGIN SODIUM
     Indication: Systemic mycosis
     Dosage: 150 MG, 1D
     Route: 065
     Dates: start: 20181005
  25. MICAFUNGIN SODIUM [Suspect]
     Active Substance: MICAFUNGIN SODIUM
     Indication: Chromoblastomycosis
     Dosage: 200 MG, 1D
     Route: 065
     Dates: start: 20181013
  26. MICAFUNGIN SODIUM [Suspect]
     Active Substance: MICAFUNGIN SODIUM
     Dosage: 250 MG, 1D
     Route: 065
     Dates: start: 20181015
  27. MICAFUNGIN SODIUM [Suspect]
     Active Substance: MICAFUNGIN SODIUM
     Dosage: 300 MG, 1D
     Route: 065
     Dates: start: 20181018, end: 20181106
  28. BELIMUMAB [Suspect]
     Active Substance: BELIMUMAB
     Indication: Systemic lupus erythematosus
     Dosage: 1 DOSAGE FORM, BIW
     Route: 041
     Dates: start: 20180119, end: 20180216
  29. BELIMUMAB [Suspect]
     Active Substance: BELIMUMAB
     Dosage: UNK
     Route: 041
     Dates: start: 20180308
  30. BELIMUMAB [Suspect]
     Active Substance: BELIMUMAB
     Dosage: 1 DOSAGE FORM, QID
     Route: 041
     Dates: start: 20180330, end: 20180817
  31. BELIMUMAB [Suspect]
     Active Substance: BELIMUMAB
     Dosage: 1 DOSAGE FORM, Q4W
     Route: 041
     Dates: start: 20180330, end: 20190405
  32. BELIMUMAB [Suspect]
     Active Substance: BELIMUMAB
     Dosage: UNK
     Route: 041
     Dates: start: 20190308
  33. AMBISOME [Suspect]
     Active Substance: AMPHOTERICIN B
     Indication: Systemic mycosis
     Dosage: 150 MG, QD
     Route: 065
     Dates: start: 20181020, end: 20181106
  34. AMBISOME [Suspect]
     Active Substance: AMPHOTERICIN B
     Indication: Chromoblastomycosis
  35. RHEUMATREX [Suspect]
     Active Substance: METHOTREXATE SODIUM
     Indication: Systemic lupus erythematosus
     Dosage: 12 MG, QW
     Route: 048
     Dates: start: 20151228
  36. FOLIC ACID [Concomitant]
     Active Substance: FOLIC ACID
     Indication: Prophylaxis
     Dosage: UNK
     Route: 065
  37. FOLIC ACID [Concomitant]
     Active Substance: FOLIC ACID
     Indication: Systemic lupus erythematosus
  38. LANSOPRAZOLE [Concomitant]
     Active Substance: LANSOPRAZOLE
     Indication: Prophylaxis against gastrointestinal ulcer
     Dosage: UNK
     Route: 065
  39. ELDECALCITOL [Concomitant]
     Active Substance: ELDECALCITOL
     Indication: Product used for unknown indication
     Dosage: UNK
     Route: 065
  40. BONALON [Concomitant]
     Active Substance: ALENDRONATE SODIUM
     Indication: Product used for unknown indication
     Dosage: UNK
     Route: 065
  41. SODIUM FERROUS CITRATE [Concomitant]
     Active Substance: SODIUM FERROUS CITRATE
     Indication: Product used for unknown indication
     Dosage: UNK
     Route: 065
  42. LOXOPROFEN SODIUM [Concomitant]
     Active Substance: LOXOPROFEN SODIUM
     Indication: Systemic lupus erythematosus
     Dosage: UNK
     Route: 065
  43. BROTIZOLAM [Concomitant]
     Active Substance: BROTIZOLAM
     Indication: Product used for unknown indication
     Dosage: UNK
     Route: 065
  44. INFLUENZA HA [Concomitant]
     Indication: Prophylaxis
     Dosage: UNK
     Route: 065
     Dates: start: 20181116
  45. BASEN [Concomitant]
     Indication: Product used for unknown indication
     Dosage: UNK, QD
     Route: 065
  46. PLAQUENIL [Concomitant]
     Active Substance: HYDROXYCHLOROQUINE SULFATE
     Indication: Systemic lupus erythematosus
     Dosage: UNK
     Route: 065
  47. SULFAMETHOXAZOLE\TRIMETHOPRIM [Concomitant]
     Active Substance: SULFAMETHOXAZOLE\TRIMETHOPRIM
     Indication: Infection prophylaxis
     Dosage: 1 DOSAGE FORM, QD
     Route: 048
     Dates: start: 20151228

REACTIONS (7)
  - Systemic mycosis [Recovered/Resolved]
  - Chromoblastomycosis [Not Recovered/Not Resolved]
  - Upper respiratory tract inflammation [Recovered/Resolved]
  - Upper respiratory tract inflammation [Recovered/Resolved]
  - Liver disorder [Recovered/Resolved]
  - Inappropriate schedule of product administration [Unknown]
  - Off label use [Unknown]

NARRATIVE: CASE EVENT DATE: 20180202
